FAERS Safety Report 16722122 (Version 1)
Quarter: 2019Q3

REPORT INFORMATION
  Report Type: Spontaneous
  Country: US (occurrence: US)
  Receive Date: 20190820
  Receipt Date: 20190820
  Transmission Date: 20191005
  Serious: Yes (Other)
  Sender: FDA-Public Use
  Company Number: US-B.I. PHARMACEUTICALS,INC./RIDGEFIELD-2019-US-001318

PATIENT
  Sex: Female

DRUGS (2)
  1. SYNJARDY XR [Suspect]
     Active Substance: EMPAGLIFLOZIN\METFORMIN HYDROCHLORIDE
     Indication: PRODUCT USED FOR UNKNOWN INDICATION
     Dosage: 25/1000MG
     Route: 065
     Dates: start: 20190805, end: 20190809
  2. METFORMIN ER [Concomitant]
     Active Substance: METFORMIN HYDROCHLORIDE
     Indication: PRODUCT USED FOR UNKNOWN INDICATION
     Dosage: ER
     Route: 065
     Dates: start: 20190805, end: 20190809

REACTIONS (5)
  - Back pain [Unknown]
  - Bowel movement irregularity [Unknown]
  - Fungal infection [Unknown]
  - Lactic acidosis [Recovering/Resolving]
  - Abdominal pain upper [Unknown]
